FAERS Safety Report 5175527-8 (Version None)
Quarter: 2006Q4

REPORT INFORMATION
  Report Type: 
  Country: None (occurrence: None)
  Receive Date: 20061215
  Receipt Date: 20060713
  Transmission Date: 20070319
  Serious: No
  Sender: FDA-Public Use
  Company Number: US-AMGEN-KDL184575

PATIENT
  Sex: Female

DRUGS (2)
  1. ENBREL [Suspect]
     Indication: ANKYLOSING SPONDYLITIS
     Route: 058
     Dates: start: 20060518
  2. ENBREL [Suspect]
     Indication: PSORIATIC ARTHROPATHY

REACTIONS (8)
  - ARTHRALGIA [None]
  - BACK PAIN [None]
  - EXCORIATION [None]
  - HIP SWELLING [None]
  - JOINT SWELLING [None]
  - LOCAL SWELLING [None]
  - PAIN IN EXTREMITY [None]
  - STRESS [None]
